FAERS Safety Report 24854825 (Version 2)
Quarter: 2025Q1

REPORT INFORMATION
  Report Type: Spontaneous
  Country: CA (occurrence: CA)
  Receive Date: 20250117
  Receipt Date: 20250212
  Transmission Date: 20250409
  Serious: Yes (Hospitalization, Other)
  Sender: BAUSCH AND LOMB
  Company Number: CA-BAUSCH-BL-2025-000609

PATIENT
  Age: 52 Year
  Sex: Female

DRUGS (1)
  1. RIFAXIMIN [Suspect]
     Active Substance: RIFAXIMIN
     Indication: Hepatic encephalopathy
     Route: 048
     Dates: start: 202409

REACTIONS (2)
  - Pulmonary oedema [Recovering/Resolving]
  - Cholangitis sclerosing [Not Recovered/Not Resolved]

NARRATIVE: CASE EVENT DATE: 20240101
